FAERS Safety Report 5629496-4 (Version None)
Quarter: 2008Q1

REPORT INFORMATION
  Report Type: 
  Country: None (occurrence: None)
  Receive Date: 20080215
  Receipt Date: 20080215
  Transmission Date: 20080703
  Serious: Yes (Hospitalization)
  Sender: FDA-Public Use
  Company Number: None

PATIENT
  Sex: Male

DRUGS (1)
  1. LAMICTAL [Suspect]
     Indication: COMPLEX PARTIAL SEIZURES
     Dosage: 100 MG BID PO
     Route: 048
     Dates: start: 20070803, end: 20070921

REACTIONS (3)
  - NEPHRITIS INTERSTITIAL [None]
  - RASH [None]
  - RENAL FAILURE ACUTE [None]
